FAERS Safety Report 5967619-8 (Version None)
Quarter: 2008Q4

REPORT INFORMATION
  Report Type: 
  Country: None (occurrence: None)
  Receive Date: 20081126
  Receipt Date: 20081114
  Transmission Date: 20090506
  Serious: Yes (Other)
  Sender: FDA-Public Use
  Company Number: PHHY2008CH28566

PATIENT
  Sex: Male

DRUGS (1)
  1. ACLASTA [Suspect]
     Indication: OSTEITIS DEFORMANS
     Dosage: UNK
     Dates: start: 20081008

REACTIONS (7)
  - ARTHRALGIA [None]
  - CHONDROCALCINOSIS [None]
  - HYPOCALCAEMIA [None]
  - JOINT EFFUSION [None]
  - JOINT SWELLING [None]
  - MOVEMENT DISORDER [None]
  - PYREXIA [None]
